FAERS Safety Report 24766399 (Version 1)
Quarter: 2024Q4

REPORT INFORMATION
  Report Type: Spontaneous
  Country: BR (occurrence: BR)
  Receive Date: 20241223
  Receipt Date: 20241223
  Transmission Date: 20250115
  Serious: Yes (Other)
  Sender: SANDOZ
  Company Number: BR-002147023-NVSC2024BR197714

PATIENT
  Sex: Female

DRUGS (10)
  1. AMITRIPTYLINE [Suspect]
     Active Substance: AMITRIPTYLINE
     Indication: Anxiety
     Dosage: UNK
     Route: 065
  2. AMITRIPTYLINE [Suspect]
     Active Substance: AMITRIPTYLINE
     Indication: Pain
  3. GABAPENTIN [Suspect]
     Active Substance: GABAPENTIN
     Indication: Anxiety
     Dosage: UNK
     Route: 065
  4. GABAPENTIN [Suspect]
     Active Substance: GABAPENTIN
     Indication: Pain
  5. KISQALI [Suspect]
     Active Substance: RIBOCICLIB
     Indication: Product used for unknown indication
     Dosage: UNK
     Route: 065
  6. KISQALI [Suspect]
     Active Substance: RIBOCICLIB
     Dosage: 3 DOSAGE FORM, QD
     Route: 065
  7. KISQALI [Suspect]
     Active Substance: RIBOCICLIB
     Dosage: 2 DOSAGE FORM, QD (RESUME TAKING KISQALI, 2 TABLETS A DAY)
     Route: 065
  8. METHADONE [Suspect]
     Active Substance: METHADONE HYDROCHLORIDE
     Indication: Anxiety
     Dosage: UNK
     Route: 065
  9. METHADONE [Suspect]
     Active Substance: METHADONE HYDROCHLORIDE
     Indication: Pain
  10. ZOMETA [Suspect]
     Active Substance: ZOLEDRONIC ACID
     Indication: Bone disorder
     Dosage: UNK
     Route: 065

REACTIONS (20)
  - Hallucination [Recovered/Resolved]
  - Shock [Unknown]
  - Stomatitis [Recovered/Resolved]
  - Eating disorder [Recovered/Resolved]
  - Decreased immune responsiveness [Recovered/Resolved]
  - Mucosal inflammation [Recovered/Resolved]
  - Feeding disorder [Recovered/Resolved]
  - Oral discomfort [Recovered/Resolved]
  - Dysphagia [Recovered/Resolved]
  - Swelling face [Recovered/Resolved]
  - Swelling [Recovered/Resolved]
  - Platelet count decreased [Unknown]
  - Oral pain [Unknown]
  - Mouth haemorrhage [Unknown]
  - Oropharyngeal plaque [Recovered/Resolved]
  - Wound [Recovered/Resolved]
  - Oral fungal infection [Recovered/Resolved]
  - Anxiety [Unknown]
  - Malaise [Recovered/Resolved]
  - Pain [Unknown]
